FAERS Safety Report 13833876 (Version 1)
Quarter: 2017Q3

REPORT INFORMATION
  Report Type: Spontaneous
  Country: JP (occurrence: JP)
  Receive Date: 20170804
  Receipt Date: 20170804
  Transmission Date: 20171127
  Serious: Yes (Hospitalization)
  Sender: FDA-Public Use
  Company Number: JP-JNJFOC-20170803387

PATIENT
  Age: 54 Year
  Sex: Male

DRUGS (13)
  1. LIPIDIL [Concomitant]
     Active Substance: FENOFIBRATE
     Dosage: BEFORE 2009
     Route: 048
     Dates: end: 20161212
  2. KAMAG G [Concomitant]
     Active Substance: MAGNESIUM OXIDE
     Dosage: BEFORE 2009
     Route: 048
  3. CANAGLU [Suspect]
     Active Substance: CANAGLIFLOZIN
     Indication: TYPE 2 DIABETES MELLITUS
     Route: 048
     Dates: start: 20160507
  4. PURSENNID [Concomitant]
     Active Substance: SENNOSIDES A AND B
     Dosage: BEFORE 2009
     Route: 048
  5. PLAVIX [Concomitant]
     Active Substance: CLOPIDOGREL BISULFATE
     Route: 048
     Dates: start: 20110910, end: 20170406
  6. NEXIUM [Concomitant]
     Active Substance: ESOMEPRAZOLE MAGNESIUM
     Route: 048
     Dates: start: 20170407
  7. ATENOLOL. [Concomitant]
     Active Substance: ATENOLOL
     Dosage: BEFORE 2009
     Route: 048
  8. TAKELDA [Concomitant]
     Active Substance: ASPIRIN\LANSOPRAZOLE
     Dosage: 100 MG OF ASPIRIN AND 15 MG OF LANSOPRAZOLE
     Route: 048
     Dates: start: 20140819, end: 20170406
  9. CRESTOR [Concomitant]
     Active Substance: ROSUVASTATIN CALCIUM
     Dosage: BEFORE 2009
     Route: 048
  10. EUCREAS [Concomitant]
     Active Substance: METFORMIN HYDROCHLORIDE\VILDAGLIPTIN
     Indication: TYPE 2 DIABETES MELLITUS
     Route: 048
     Dates: start: 20151221
  11. EPADEL [Concomitant]
     Active Substance: ICOSAPENT
     Route: 048
     Dates: start: 20161213
  12. BAYASPIRIN [Concomitant]
     Active Substance: ASPIRIN
     Route: 048
     Dates: start: 20170407
  13. ZETIA [Concomitant]
     Active Substance: EZETIMIBE
     Route: 048
     Dates: start: 20161025, end: 20161218

REACTIONS (2)
  - Dehydration [Unknown]
  - Coronary artery stenosis [Recovering/Resolving]

NARRATIVE: CASE EVENT DATE: 20161122
